FAERS Safety Report 23783749 (Version 6)
Quarter: 2024Q4

REPORT INFORMATION
  Report Type: Spontaneous
  Country: CA (occurrence: CA)
  Receive Date: 20240425
  Receipt Date: 20241218
  Transmission Date: 20250114
  Serious: Yes (Other)
  Sender: PFIZER
  Company Number: CA-PFIZER INC-202400093163

PATIENT
  Age: 40 Year
  Sex: Male
  Weight: 120 kg

DRUGS (2)
  1. RUXIENCE [Suspect]
     Active Substance: RITUXIMAB-PVVR
     Indication: Rheumatoid arthritis
     Dosage: 1000 MG, ON DAY 1 AND DAY 15
     Route: 042
     Dates: start: 20240327
  2. RUXIENCE [Suspect]
     Active Substance: RITUXIMAB-PVVR
     Dosage: 1000 MG, ON DAY 1 AND DAY 15 (1000MG, 3 WEEKS AND 1 DAY)
     Route: 042
     Dates: start: 20240418

REACTIONS (3)
  - Cyst [Unknown]
  - Post procedural infection [Recovered/Resolved]
  - Condition aggravated [Unknown]

NARRATIVE: CASE EVENT DATE: 20240101
